FAERS Safety Report 6013919-5 (Version None)
Quarter: 2008Q4

REPORT INFORMATION
  Report Type: 
  Country: None (occurrence: None)
  Receive Date: 20081219
  Receipt Date: 20081210
  Transmission Date: 20090506
  Serious: Yes (Hospitalization)
  Sender: FDA-Public Use
  Company Number: CA-JNJFOC-20081203296

PATIENT
  Sex: Female
  Weight: 88.4 kg

DRUGS (2)
  1. REMICADE [Suspect]
     Route: 042
  2. REMICADE [Suspect]
     Indication: CROHN'S DISEASE
     Dosage: 37 INFUSIONS ON UNKNOWN DATES
     Route: 042

REACTIONS (3)
  - CHOLECYSTECTOMY [None]
  - ILEOSTOMY [None]
  - PNEUMONIA [None]
